FAERS Safety Report 16143664 (Version 1)
Quarter: 2019Q2

REPORT INFORMATION
  Report Type: Spontaneous
  Country: TR (occurrence: TR)
  Receive Date: 20190401
  Receipt Date: 20190401
  Transmission Date: 20190711
  Serious: Yes (Death, Hospitalization)
  Sender: FDA-Public Use
  Company Number: TR-PFIZER INC-2019121178

PATIENT
  Age: 66 Year
  Sex: Male

DRUGS (1)
  1. SUNITINIB MALATE. [Suspect]
     Active Substance: SUNITINIB MALATE
     Indication: METASTATIC RENAL CELL CARCINOMA
     Dosage: 50 MG, 4 WEEKS ON 2 WEEKS OFF

REACTIONS (6)
  - Diarrhoea [Unknown]
  - Hepatic failure [Fatal]
  - Lactic acidosis [Fatal]
  - Cardiotoxicity [Fatal]
  - Multiple organ dysfunction syndrome [Fatal]
  - Hypothyroidism [Unknown]
